FAERS Safety Report 15090541 (Version 1)
Quarter: 2018Q2

REPORT INFORMATION
  Report Type: Report from Study
  Country: ES (occurrence: ES)
  Receive Date: 20180629
  Receipt Date: 20180629
  Transmission Date: 20180711
  Serious: Yes (Hospitalization)
  Sender: FDA-Public Use
  Company Number: ES-PFIZER INC-2018227528

PATIENT
  Age: 66 Year
  Sex: Female
  Weight: 55 kg

DRUGS (7)
  1. SUNITINIB MALATE. [Suspect]
     Active Substance: SUNITINIB MALATE
     Dosage: 25 MG, 1/DAY
     Route: 048
     Dates: start: 20180608, end: 20180615
  2. DUROGESIC [Concomitant]
     Active Substance: FENTANYL
     Indication: TUMOUR PAIN
     Dosage: 25 UG, UNK
     Route: 062
     Dates: start: 20180508, end: 20180525
  3. SUNITINIB MALATE. [Suspect]
     Active Substance: SUNITINIB MALATE
     Indication: SARCOMA
     Dosage: 37.5 MG, DAILY
     Route: 048
     Dates: start: 20171127, end: 20171211
  4. BMS-936558 [Suspect]
     Active Substance: NIVOLUMAB
     Indication: SARCOMA
     Dosage: 3 MG/KG, EVERY TWO WEEKS
     Route: 042
     Dates: start: 20171211, end: 20180517
  5. DUROGESIC [Concomitant]
     Active Substance: FENTANYL
     Dosage: 12 UG, UNK
     Dates: start: 20180525, end: 20180530
  6. SUNITINIB MALATE. [Suspect]
     Active Substance: SUNITINIB MALATE
     Dosage: 25 MG, DAILY
     Route: 048
     Dates: start: 20171211, end: 20180531
  7. BMS-936558 [Suspect]
     Active Substance: NIVOLUMAB
     Dosage: 3 MG/KG, EVERY TWO WEEKS
     Route: 042
     Dates: start: 20180608, end: 20180615

REACTIONS (4)
  - Malaise [Recovered/Resolved with Sequelae]
  - Pyrexia [Recovered/Resolved]
  - Malaise [Not Recovered/Not Resolved]
  - Fatigue [Not Recovered/Not Resolved]

NARRATIVE: CASE EVENT DATE: 20180531
